FAERS Safety Report 13601614 (Version 1)
Quarter: 2017Q2

REPORT INFORMATION
  Report Type: Spontaneous
  Country: US (occurrence: US)
  Receive Date: 20170601
  Receipt Date: 20170601
  Transmission Date: 20170830
  Serious: No
  Sender: FDA-Public Use
  Company Number: US-BAUSCH-BL-2016-012659

PATIENT
  Age: 62 Year
  Sex: Female

DRUGS (5)
  1. ELIDEL [Suspect]
     Active Substance: PIMECROLIMUS
     Indication: INFLAMMATION
  2. ELIDEL [Suspect]
     Active Substance: PIMECROLIMUS
     Indication: BURNING SENSATION
  3. ELIDEL [Suspect]
     Active Substance: PIMECROLIMUS
     Indication: PAPULE
  4. ELIDEL [Suspect]
     Active Substance: PIMECROLIMUS
     Indication: ACNE
     Route: 061
     Dates: start: 2016
  5. ELIDEL [Suspect]
     Active Substance: PIMECROLIMUS
     Indication: ERYTHEMA

REACTIONS (4)
  - Condition aggravated [Unknown]
  - Burning sensation [Unknown]
  - Drug ineffective for unapproved indication [Unknown]
  - Off label use [Unknown]
